FAERS Safety Report 7175938-5 (Version None)
Quarter: 2010Q4

REPORT INFORMATION
  Report Type: 
  Country: None (occurrence: None)
  Receive Date: 20101220
  Receipt Date: 20101210
  Transmission Date: 20110411
  Serious: Yes (Hospitalization)
  Sender: FDA-Public Use
  Company Number: US-BIOGENIDEC-2009BI009696

PATIENT
  Age: 67 Year
  Sex: Female

DRUGS (8)
  1. AVONEX [Suspect]
     Indication: MULTIPLE SCLEROSIS
     Route: 030
     Dates: start: 19981116, end: 20061101
  2. AVONEX [Suspect]
     Route: 030
     Dates: start: 20070307, end: 20071107
  3. AVONEX [Suspect]
     Route: 030
     Dates: start: 20080227
  4. LEXAPRO [Concomitant]
  5. TYLOX [Concomitant]
  6. MEDICATIONS [Concomitant]
  7. REFRESH [Concomitant]
  8. REFRESH [Concomitant]

REACTIONS (2)
  - SOMNOLENCE [None]
  - SPINAL OSTEOARTHRITIS [None]
